FAERS Safety Report 7919353-2 (Version None)
Quarter: 2011Q4

REPORT INFORMATION
  Report Type: 
  Country: None (occurrence: None)
  Receive Date: 20111117
  Receipt Date: 20111109
  Transmission Date: 20120403
  Serious: Yes (Hospitalization)
  Sender: FDA-Public Use
  Company Number: US-JNJFOC-20111106435

PATIENT
  Sex: Female
  Weight: 52.16 kg

DRUGS (1)
  1. DURAGESIC-100 [Suspect]
     Indication: PAIN
     Dosage: PATIENT WAS TREATED WITH 175 UG/HR BY GIVING ONE 100 UG/HR AND ONE 75 UG/HR PATCH
     Route: 062
     Dates: start: 20090101

REACTIONS (4)
  - FALL [None]
  - CERVICAL VERTEBRAL FRACTURE [None]
  - UPPER LIMB FRACTURE [None]
  - PRODUCT QUALITY ISSUE [None]
